FAERS Safety Report 24065229 (Version 1)
Quarter: 2024Q3

REPORT INFORMATION
  Report Type: Spontaneous
  Country: US (occurrence: None)
  Receive Date: 20240708
  Receipt Date: 20240708
  Transmission Date: 20241017
  Serious: Yes (unspecified)
  Sender: Public
  Company Number: None

PATIENT
  Age: 71 Year
  Sex: Female

DRUGS (1)
  1. IBRANCE [Suspect]
     Active Substance: PALBOCICLIB
     Indication: Breast cancer female
     Dosage: 100MG QD X21 DAYS OFF 7 DAYS  ORAL
     Route: 048

REACTIONS (5)
  - Diarrhoea [None]
  - Urinary tract infection [None]
  - Clostridium difficile infection [None]
  - Knee arthroplasty [None]
  - Therapy interrupted [None]
